FAERS Safety Report 21416729 (Version 1)
Quarter: 2022Q4

REPORT INFORMATION
  Report Type: Spontaneous
  Country: JP (occurrence: JP)
  Receive Date: 20221006
  Receipt Date: 20221006
  Transmission Date: 20230112
  Serious: Yes (Other)
  Sender: FDA-Public Use
  Company Number: JP-PFIZER INC-PV202200071753

PATIENT
  Age: 73 Year
  Sex: Female

DRUGS (4)
  1. METHOTREXATE SODIUM [Suspect]
     Active Substance: METHOTREXATE SODIUM
     Indication: Rheumatoid arthritis
     Dosage: 8 MG, WEEKLY
  2. BUCILLAMINE [Concomitant]
     Active Substance: BUCILLAMINE
     Indication: Rheumatoid arthritis
     Dosage: 200 MG, DAILY
  3. PREDNISOLONE [Concomitant]
     Active Substance: PREDNISOLONE
     Indication: Rheumatoid arthritis
     Dosage: 2 MG, DAILY
  4. INFLIXIMAB [Concomitant]
     Active Substance: INFLIXIMAB
     Indication: Rheumatoid arthritis
     Dosage: 8 MG/KG/8 WEEKS

REACTIONS (5)
  - White blood cell count decreased [Recovering/Resolving]
  - Lymphocyte count decreased [Recovering/Resolving]
  - Haemoglobin decreased [Recovering/Resolving]
  - Blood test abnormal [Recovering/Resolving]
  - Platelet count decreased [Recovering/Resolving]
